FAERS Safety Report 7318729-4 (Version None)
Quarter: 2011Q1

REPORT INFORMATION
  Report Type: 
  Country: None (occurrence: None)
  Receive Date: 20110228
  Receipt Date: 20100203
  Transmission Date: 20110831
  Serious: No
  Sender: FDA-Public Use
  Company Number: A0842819A

PATIENT
  Age: 47 Year
  Sex: Female

DRUGS (3)
  1. SUMATRIPTAN SUCCINATE [Suspect]
     Indication: MIGRAINE
     Dosage: 6MG AS REQUIRED
     Route: 058
     Dates: start: 20091101
  2. AMBIEN [Concomitant]
  3. EXCEDRIN (MIGRAINE) [Concomitant]

REACTIONS (3)
  - DRUG INEFFECTIVE [None]
  - INJECTION SITE PAIN [None]
  - INJECTION SITE HAEMORRHAGE [None]
